FAERS Safety Report 11315842 (Version 2)
Quarter: 2015Q3

REPORT INFORMATION
  Report Type: Report from Study
  Country: US (occurrence: US)
  Receive Date: 20150728
  Receipt Date: 20150803
  Transmission Date: 20151125
  Serious: No
  Sender: FDA-Public Use
  Company Number: PHEH2015US001287

PATIENT
  Age: 34 Year
  Sex: Female
  Weight: 108.84 kg

DRUGS (1)
  1. GILENYA [Suspect]
     Active Substance: FINGOLIMOD HYDROCHLORIDE
     Indication: MULTIPLE SCLEROSIS
     Dosage: 0.5 MG, QD
     Route: 048
     Dates: start: 20150107

REACTIONS (11)
  - Nausea [Recovering/Resolving]
  - Memory impairment [Unknown]
  - Headache [Unknown]
  - Dizziness [Unknown]
  - Abdominal discomfort [Not Recovered/Not Resolved]
  - Weight decreased [Recovering/Resolving]
  - Malaise [Unknown]
  - Back pain [Unknown]
  - Insomnia [Unknown]
  - Dysphagia [Recovering/Resolving]
  - Vision blurred [Unknown]

NARRATIVE: CASE EVENT DATE: 20150107
